FAERS Safety Report 4514307-0 (Version None)
Quarter: 2004Q4

REPORT INFORMATION
  Report Type: 
  Country: None (occurrence: None)
  Receive Date: 20041124
  Receipt Date: 20041109
  Transmission Date: 20050328
  Serious: Yes (Other)
  Sender: FDA-Public Use
  Company Number: JP_040904520

PATIENT
  Age: 39 Year
  Sex: Male
  Weight: 70 kg

DRUGS (6)
  1. GEMZAR [Suspect]
     Indication: PANCREATIC CARCINOMA
     Dosage: 1300 MG OTHER
     Route: 050
     Dates: start: 20030624, end: 20031014
  2. UFT [Concomitant]
  3. CISPLATIN [Concomitant]
  4. LANSOPRAZOLE [Concomitant]
  5. URUSOTORAN (TRICHLORMETHIAZIDE) [Concomitant]
  6. GLIMICRON (GLICLAZIDE) [Concomitant]

REACTIONS (4)
  - BILE DUCT STENOSIS [None]
  - JAUNDICE CHOLESTATIC [None]
  - MALIGNANT NEOPLASM PROGRESSION [None]
  - PANCREATIC CARCINOMA STAGE IV [None]
